FAERS Safety Report 15414733 (Version 1)
Quarter: 2018Q3

REPORT INFORMATION
  Report Type: Report from Study
  Country: TW (occurrence: TW)
  Receive Date: 20180921
  Receipt Date: 20180921
  Transmission Date: 20181010
  Serious: Yes (Death, Life-Threatening, Hospitalization)
  Sender: FDA-Public Use
  Company Number: PHHY2018TW045114

PATIENT
  Age: 66 Year
  Sex: Male
  Weight: 28 kg

DRUGS (2)
  1. TASIGNA [Suspect]
     Active Substance: NILOTINIB
     Indication: CHRONIC MYELOID LEUKAEMIA
     Dosage: 200 MG, QD
     Route: 048
     Dates: start: 20160330, end: 20171112
  2. TASIGNA [Suspect]
     Active Substance: NILOTINIB
     Dosage: UNK
     Route: 048
     Dates: end: 20180206

REACTIONS (7)
  - Sepsis [Fatal]
  - Limb injury [Unknown]
  - Blister [Unknown]
  - Respiratory failure [Unknown]
  - Gangrene [Unknown]
  - Pneumonia [Fatal]
  - Pulmonary tuberculosis [Unknown]

NARRATIVE: CASE EVENT DATE: 20171106
